FAERS Safety Report 8450749-9 (Version None)
Quarter: 2012Q2

REPORT INFORMATION
  Report Type: 
  Country: None (occurrence: None)
  Receive Date: 20120613
  Receipt Date: 20120529
  Transmission Date: 20120825
  Serious: Yes (Other)
  Sender: FDA-Public Use
  Company Number: 1301802

PATIENT
  Age: 73 Year
  Sex: Female

DRUGS (6)
  1. SIMVASTATIN [Concomitant]
  2. OMEPRAZOLE [Concomitant]
  3. TELMISARTAN AND HYDROCHLOROTHIAZIDE [Concomitant]
  4. CARBOPLATIN [Suspect]
     Indication: OVARIAN CANCER
     Dosage: 160 MG, CYCLIC, UNKNOWN, INTRAVENOUS (NOT OTHERWISE SPECIFIED)
     Route: 042
     Dates: start: 20120424, end: 20120508
  5. NADROPARIN [Concomitant]
  6. POTASSIUM CHLORIDE [Concomitant]

REACTIONS (3)
  - ABDOMINAL PAIN UPPER [None]
  - PRURITUS [None]
  - DYSPNOEA [None]
